FAERS Safety Report 15486557 (Version 2)
Quarter: 2021Q1

REPORT INFORMATION
  Report Type: Spontaneous
  Country: IT (occurrence: IT)
  Receive Date: 20181011
  Receipt Date: 20210330
  Transmission Date: 20210419
  Serious: Yes (Life-Threatening, Other)
  Sender: FDA-Public Use
  Company Number: IT-AUROBINDO-AUR-APL-2018-049341

PATIENT
  Age: 38 Year
  Sex: Female

DRUGS (17)
  1. LAMOTRIGINE. [Interacting]
     Active Substance: LAMOTRIGINE
     Dosage: 350 MILLIGRAM, ONCE A DAY
     Route: 065
  2. FOLLITROPIN BETA [Suspect]
     Active Substance: FOLLITROPIN
     Indication: ASSISTED REPRODUCTIVE TECHNOLOGY
     Dosage: UNK
     Route: 065
  3. CETRORELIX ACETATE [Suspect]
     Active Substance: CETRORELIX ACETATE
     Indication: HORMONE THERAPY
     Dosage: 0.25 MILLIGRAM
     Route: 016
  4. CORIOGONADOTROPINA ALFA [Suspect]
     Active Substance: CHORIOGONADOTROPIN ALFA
     Indication: PRODUCT USED FOR UNKNOWN INDICATION
     Dosage: UNK
     Route: 005
  5. FOLLITROPIN BETA [Suspect]
     Active Substance: FOLLITROPIN
     Indication: IN VITRO FERTILISATION
  6. LEVETIRACETAM. [Suspect]
     Active Substance: LEVETIRACETAM
     Indication: GENERALISED TONIC-CLONIC SEIZURE
     Dosage: UNK UNK, ONCE A DAY
     Route: 048
  7. LAMOTRIGINE. [Suspect]
     Active Substance: LAMOTRIGINE
     Indication: IN VITRO FERTILISATION
     Dosage: 450 MILLIGRAM
     Route: 065
  8. GESTODENE [Suspect]
     Active Substance: GESTODENE
     Indication: IN VITRO FERTILISATION
     Dosage: 0.03 MILLIGRAM
     Route: 065
  9. GESTODENE [Suspect]
     Active Substance: GESTODENE
     Indication: HORMONE THERAPY
  10. GANIRELIX [Suspect]
     Active Substance: GANIRELIX
     Indication: PRODUCT USED FOR UNKNOWN INDICATION
     Dosage: UNK
     Route: 065
  11. ETHINYLESTRADIOL [Suspect]
     Active Substance: ETHINYL ESTRADIOL
     Indication: IN VITRO FERTILISATION
  12. CETRORELIX ACETATE [Suspect]
     Active Substance: CETRORELIX ACETATE
     Indication: IN VITRO FERTILISATION
  13. CETRORELIX ACETATE [Suspect]
     Active Substance: CETRORELIX ACETATE
     Indication: HYPOTHALAMO-PITUITARY DISORDER
  14. ESTRADIOL VALERATE. [Interacting]
     Active Substance: ESTRADIOL VALERATE
     Indication: IN VITRO FERTILISATION
     Dosage: 4 MILLIGRAM
     Route: 065
  15. CLOBAZAM. [Concomitant]
     Active Substance: CLOBAZAM
     Indication: GENERALISED TONIC-CLONIC SEIZURE
     Dosage: 10 MILLIGRAM
     Route: 065
  16. ETHINYLESTRADIOL [Suspect]
     Active Substance: ETHINYL ESTRADIOL
     Indication: HORMONE THERAPY
     Dosage: 0.08 MILLIGRAM
     Route: 065
  17. FOLLITROPIN BETA [Suspect]
     Active Substance: FOLLITROPIN
     Indication: HORMONE THERAPY
     Dosage: 300 INTERNATIONAL UNIT
     Route: 065

REACTIONS (6)
  - Seizure [Unknown]
  - Drug ineffective [Unknown]
  - Drug interaction [Unknown]
  - Drug level decreased [Unknown]
  - Condition aggravated [Unknown]
  - Exposure during pregnancy [Unknown]
